FAERS Safety Report 4714600-2 (Version None)
Quarter: 2005Q3

REPORT INFORMATION
  Report Type: 
  Country: None (occurrence: None)
  Receive Date: 20050714
  Receipt Date: 20050714
  Transmission Date: 20060218
  Serious: Yes (Other)
  Sender: FDA-Public Use
  Company Number: None

PATIENT
  Sex: Female

DRUGS (2)
  1. ADALIMUMAB [Suspect]
     Indication: PSORIASIS
     Dosage: 40MG QOWEEK SUBCUTANEOUS
     Route: 058
  2. PENICILLIN [Concomitant]

REACTIONS (1)
  - PSORIASIS [None]
